FAERS Safety Report 10052197 (Version 1)
Quarter: 2014Q2

REPORT INFORMATION
  Report Type: Spontaneous
  Country: NL (occurrence: NL)
  Receive Date: 20140402
  Receipt Date: 20140402
  Transmission Date: 20141212
  Serious: Yes (Hospitalization)
  Sender: FDA-Public Use
  Company Number: NL-AMGEN-NLDSP2010013906

PATIENT
  Age: 52 Year
  Sex: Female

DRUGS (1)
  1. NEULASTA [Suspect]
     Indication: PROPHYLAXIS
     Dosage: 6 MG, 1X3W
     Route: 058
     Dates: start: 20101101, end: 20101112

REACTIONS (5)
  - Investigation [Recovered/Resolved]
  - Chest pain [Unknown]
  - Arthralgia [Unknown]
  - Generalised erythema [Unknown]
  - Nasal congestion [Unknown]
